FAERS Safety Report 5765158-0 (Version None)
Quarter: 2008Q2

REPORT INFORMATION
  Report Type: 
  Country: None (occurrence: None)
  Receive Date: 20080611
  Receipt Date: 20080602
  Transmission Date: 20081010
  Serious: Yes (Hospitalization)
  Sender: FDA-Public Use
  Company Number: ES-JNJFOC-20080600348

PATIENT
  Age: 29 Year
  Sex: Female

DRUGS (5)
  1. DURAGESIC-100 [Suspect]
     Indication: NEURALGIA
     Route: 062
  2. TRAMADOL HCL [Suspect]
     Indication: NEURALGIA
     Route: 048
  3. ACABEL [Suspect]
     Indication: NEURALGIA
     Route: 048
  4. ZYTRAM [Suspect]
     Indication: NEURALGIA
     Route: 048
  5. CLORAZEPATE DIPOTASSIUM [Concomitant]
     Indication: NEURALGIA

REACTIONS (6)
  - ASTHENIA [None]
  - HYPERHIDROSIS [None]
  - ILEUS PARALYTIC [None]
  - NAUSEA [None]
  - PRURITUS [None]
  - VOMITING [None]
